FAERS Safety Report 6679703 (Version 5)
Quarter: 2018Q4

REPORT INFORMATION
  Report Type: Spontaneous
  Country: CA (occurrence: CA)
  Receive Date: 20080624
  Receipt Date: 20181210
  Transmission Date: 20190205
  Serious: Yes (Death)
  Sender: FDA-Public Use
  Company Number: CA-PFIZER INC-2008050730

PATIENT
  Age: 48 Year
  Sex: Male

DRUGS (9)
  1. ACETAMINOPHEN AND CODEINE [Interacting]
     Active Substance: ACETAMINOPHEN\CODEINE PHOSPHATE
     Dosage: UNK
     Route: 048
  2. SERTRALINE HCL [Suspect]
     Active Substance: SERTRALINE HYDROCHLORIDE
     Dosage: UNK
     Route: 048
  3. CLONAZEPAM. [Interacting]
     Active Substance: CLONAZEPAM
     Dosage: UNK
     Route: 048
  4. ACETAMINOPHEN AND CODEINE [Interacting]
     Active Substance: ACETAMINOPHEN\CODEINE PHOSPHATE
     Dosage: 60 MG, UNK (CODEINE DOSE)
  5. BISACODYL. [Interacting]
     Active Substance: BISACODYL
     Dosage: UNK
     Route: 065
  6. MORPHINE [Interacting]
     Active Substance: MORPHINE
     Dosage: UNK
     Route: 065
  7. LONARID [Interacting]
     Active Substance: ACETAMINOPHEN\AMOBARBITAL\CAFFEINE\CODEINE PHOSPHATE
     Dosage: UNK
     Route: 048
  8. LORAZEPAM. [Interacting]
     Active Substance: LORAZEPAM
     Dosage: UNK
     Route: 048
  9. ACETAMINOPHEN AND CODEINE [Interacting]
     Active Substance: ACETAMINOPHEN\CODEINE PHOSPHATE
     Dosage: 30 MG, UNK (ACETAMINOPHEN TABLETS)

REACTIONS (7)
  - Serotonin syndrome [Fatal]
  - Respiratory depression [Fatal]
  - Toxicity to various agents [Fatal]
  - Pulmonary oedema [Fatal]
  - Drug interaction [Fatal]
  - Pneumonia [Fatal]
  - Arteriosclerosis [Fatal]
